FAERS Safety Report 4440235-5 (Version None)
Quarter: 2004Q3

REPORT INFORMATION
  Report Type: 
  Country: None (occurrence: None)
  Receive Date: 20040831
  Receipt Date: 20040831
  Transmission Date: 20050211
  Serious: No
  Sender: FDA-Public Use
  Company Number: None

PATIENT
  Age: 20 Year
  Sex: Male

DRUGS (5)
  1. ZOSYN [Suspect]
     Indication: PNEUMONIA
     Dosage: 4.5GM Q 6H INTRAVENOUS
     Route: 042
     Dates: start: 20040628, end: 20040710
  2. METRONIDAZOLE [Concomitant]
  3. CIPRO [Concomitant]
  4. VANCOMYCIN [Concomitant]
  5. CEFIPIME [Concomitant]

REACTIONS (1)
  - NEUTROPENIA [None]
